FAERS Safety Report 6551947-1 (Version None)
Quarter: 2010Q1

REPORT INFORMATION
  Report Type: 
  Country: None (occurrence: None)
  Receive Date: 20100120
  Receipt Date: 20091209
  Transmission Date: 20100710
  Serious: No
  Sender: FDA-Public Use
  Company Number: C-09-008

PATIENT
  Sex: Female

DRUGS (2)
  1. MICONAZOLE NITRATE [Suspect]
     Indication: PRURITUS
     Dosage: 2% VAGINAL
     Route: 067
  2. MICONAZOLE NITRATE [Suspect]
     Indication: VAGINAL INFECTION
     Dosage: 2% VAGINAL
     Route: 067

REACTIONS (1)
  - DRUG INEFFECTIVE [None]
